FAERS Safety Report 4821908-9 (Version None)
Quarter: 2005Q4

REPORT INFORMATION
  Report Type: 
  Country: None (occurrence: None)
  Receive Date: 20051107
  Receipt Date: 20051013
  Transmission Date: 20060501
  Serious: Yes (Hospitalization)
  Sender: FDA-Public Use
  Company Number: FR-SANOFI-SYNTHELABO-A02200502763

PATIENT
  Sex: Male

DRUGS (10)
  1. KAYEXALATE [Suspect]
     Dosage: 30 G
     Route: 048
     Dates: start: 20050909, end: 20051001
  2. SINTROM [Concomitant]
     Dosage: UNK
     Route: 048
  3. VASTEN [Concomitant]
     Route: 048
  4. FUROSEMIDE [Concomitant]
     Route: 065
  5. AMIODARONE HCL [Concomitant]
     Route: 048
  6. SPIRONOLACTONE [Concomitant]
     Route: 048
  7. EPINITRIL [Concomitant]
     Route: 062
  8. SERETIDE [Concomitant]
     Dosage: UNK
     Route: 055
  9. PARIET [Concomitant]
     Route: 048
  10. SURBRONC [Concomitant]
     Dosage: UNK
     Route: 048

REACTIONS (3)
  - ACUTE PULMONARY OEDEMA [None]
  - OEDEMA [None]
  - OEDEMA PERIPHERAL [None]
